FAERS Safety Report 7578782-X (Version None)
Quarter: 2011Q2

REPORT INFORMATION
  Report Type: 
  Country: None (occurrence: None)
  Receive Date: 20110628
  Receipt Date: 20110623
  Transmission Date: 20111010
  Serious: Yes (Hospitalization)
  Sender: FDA-Public Use
  Company Number: DE-ABBOTT-11P-062-0734980-00

PATIENT
  Sex: Female

DRUGS (3)
  1. CORTISONE ACETATE [Suspect]
     Indication: PRODUCT USED FOR UNKNOWN INDICATION
  2. HUMIRA [Suspect]
     Dates: start: 20110522
  3. HUMIRA [Suspect]
     Indication: RHEUMATOID ARTHRITIS
     Dates: start: 20061201, end: 20110403

REACTIONS (1)
  - ARTHROPATHY [None]
